FAERS Safety Report 7894035-4 (Version None)
Quarter: 2011Q4

REPORT INFORMATION
  Report Type: 
  Country: None (occurrence: None)
  Receive Date: 20111104
  Receipt Date: 20111031
  Transmission Date: 20120403
  Serious: Yes (Other)
  Sender: FDA-Public Use
  Company Number: US-ABBOTT-11P-163-0870296-00

PATIENT
  Age: 34 Year
  Sex: Female

DRUGS (4)
  1. HUMIRA [Suspect]
     Dates: start: 20111025
  2. BUSPAR [Concomitant]
     Indication: DEPRESSION
     Route: 048
  3. HUMIRA [Suspect]
     Indication: PSORIASIS
     Dates: start: 20110928, end: 20111011
  4. SPIRONOLACTONE [Concomitant]
     Indication: ACNE
     Route: 048

REACTIONS (4)
  - SKIN BURNING SENSATION [None]
  - PRURITUS [None]
  - STREPTOCOCCAL INFECTION [None]
  - PSORIASIS [None]
